FAERS Safety Report 23818955 (Version 1)
Quarter: 2024Q2

REPORT INFORMATION
  Report Type: Spontaneous
  Country: US (occurrence: US)
  Receive Date: 20240506
  Receipt Date: 20240506
  Transmission Date: 20240716
  Serious: No
  Sender: FDA-Public Use
  Company Number: US-HALEON-2171806

PATIENT

DRUGS (1)
  1. SENSODYNE SENSITIVITY GUM AND ENAMEL MINT [Suspect]
     Active Substance: STANNOUS FLUORIDE
     Indication: Gingival disorder

REACTIONS (1)
  - Off label use [Unknown]
